FAERS Safety Report 13843943 (Version 1)
Quarter: 2017Q3

REPORT INFORMATION
  Report Type: Spontaneous
  Country: US (occurrence: US)
  Receive Date: 20170808
  Receipt Date: 20170808
  Transmission Date: 20171127
  Serious: Yes (Other)
  Sender: FDA-Public Use
  Company Number: US-COVIS PHARMA B.V.-2017COV00156

PATIENT
  Age: 77 Year
  Sex: Female
  Weight: 52.61 kg

DRUGS (16)
  1. ANASTROZOLE. [Suspect]
     Active Substance: ANASTROZOLE
     Indication: BREAST CANCER
     Dosage: 1 MG, 1X/DAY
     Route: 048
     Dates: start: 201702
  2. LASIX [Concomitant]
     Active Substance: FUROSEMIDE
     Dosage: 20 MG, 1X/DAY
     Route: 048
     Dates: start: 201702
  3. PREDNISONE. [Concomitant]
     Active Substance: PREDNISONE
     Dosage: 2.5 MG, 1X/DAY
     Route: 048
     Dates: start: 2016
  4. PLAVIX [Concomitant]
     Active Substance: CLOPIDOGREL BISULFATE
     Dosage: 75 MG, 1X/DAY
     Route: 048
     Dates: start: 201702
  5. PRAVASTATIN. [Concomitant]
     Active Substance: PRAVASTATIN
     Dosage: 20 MG, 1X/DAY
     Route: 048
     Dates: start: 2015
  6. CARVEDILOL. [Concomitant]
     Active Substance: CARVEDILOL
     Dosage: 3.125 MG, 2X/DAY
     Route: 048
     Dates: start: 201702
  7. MOVANTIK [Suspect]
     Active Substance: NALOXEGOL OXALATE
     Indication: CONSTIPATION
     Dosage: 25 MG, 1X/DAY
     Dates: start: 201612
  8. HYDROCODONE BITARTRATE AND ACETAMINOPHEN [Concomitant]
     Active Substance: ACETAMINOPHEN\HYDROCODONE BITARTRATE
     Dosage: UNK UNK, 4X/DAY
     Route: 048
     Dates: start: 20170428
  9. ASTHMADEX [Concomitant]
     Dosage: 1 DOSAGE UNITS, 2X/DAY
     Route: 055
     Dates: start: 2012
  10. OMEPRAZOLE MAGNESIUM. [Suspect]
     Active Substance: OMEPRAZOLE MAGNESIUM
     Indication: ABDOMINAL DISCOMFORT
     Dosage: 40 MG, 1X/DAY
     Route: 048
     Dates: start: 2015
  11. SYMBICORT [Suspect]
     Active Substance: BUDESONIDE\FORMOTEROL FUMARATE DIHYDRATE
     Indication: CHRONIC OBSTRUCTIVE PULMONARY DISEASE
     Dosage: 2 DOSAGE UNITS, 2X/DAY
     Route: 055
  12. PROPOFOL. [Suspect]
     Active Substance: PROPOFOL
     Dosage: UNK
     Route: 042
  13. LISINOPRIL. [Suspect]
     Active Substance: LISINOPRIL
     Indication: CARDIAC FAILURE
     Dosage: 5 MG, 1X/DAY
     Dates: start: 201702
  14. ASPIRIN. [Concomitant]
     Active Substance: ASPIRIN
     Dosage: 81 MG, 1X/DAY
     Route: 048
     Dates: start: 2009
  15. ONDANSETRON [Concomitant]
     Active Substance: ONDANSETRON
     Dosage: 4 MG, 3X/DAY
     Route: 048
     Dates: start: 2016
  16. PROAIR HFA [Concomitant]
     Active Substance: ALBUTEROL SULFATE
     Dosage: 2 DOSAGE UNITS, 4X/DAY
     Route: 055
     Dates: start: 2007

REACTIONS (15)
  - Left ventricular failure [Not Recovered/Not Resolved]
  - Nausea [Unknown]
  - Haemorrhage [Unknown]
  - Dyspnoea [Unknown]
  - Breast cancer recurrent [Not Recovered/Not Resolved]
  - Intestinal obstruction [Unknown]
  - Abdominal discomfort [Unknown]
  - Insomnia [Unknown]
  - Constipation [Unknown]
  - Pain [Not Recovered/Not Resolved]
  - Drug dose omission [Unknown]
  - Diverticulitis [Unknown]
  - Off label use [Not Recovered/Not Resolved]
  - Cardiovascular disorder [Recovering/Resolving]
  - Pain in extremity [Unknown]

NARRATIVE: CASE EVENT DATE: 201605
